FAERS Safety Report 11537366 (Version 1)
Quarter: 2015Q3

REPORT INFORMATION
  Report Type: Spontaneous
  Country: IE (occurrence: SA)
  Receive Date: 20150922
  Receipt Date: 20150922
  Transmission Date: 20151125
  Serious: Yes (Other)
  Sender: FDA-Public Use
  Company Number: IE-PFIZER INC-2015306082

PATIENT
  Sex: Female

DRUGS (1)
  1. LYRICA [Suspect]
     Active Substance: PREGABALIN
     Indication: NEURALGIA
     Dosage: 50 MG, ONE TABLET AT NIGHT AND ONE IN THE MORNING
     Dates: start: 201506, end: 2015

REACTIONS (3)
  - Ankle fracture [Unknown]
  - Fall [Unknown]
  - Somnolence [Recovered/Resolved]
